FAERS Safety Report 8534089-5 (Version None)
Quarter: 2012Q2

REPORT INFORMATION
  Report Type: 
  Country: None (occurrence: None)
  Receive Date: 20120628
  Receipt Date: 20120618
  Transmission Date: 20120825
  Serious: Yes (Hospitalization)
  Sender: FDA-Public Use
  Company Number: M2012-018D

PATIENT
  Age: 62 Year
  Sex: Male

DRUGS (3)
  1. ALLOGENIC EXTRACTS [Suspect]
     Indication: HYPERSENSITIVITY
     Dosage: 0.3 ML INJECTION, MANTENANCE SINCE JAN
  2. ALLEGRA [Concomitant]
  3. ASTELIN [Concomitant]

REACTIONS (1)
  - ILL-DEFINED DISORDER [None]
